FAERS Safety Report 8830154 (Version 1)
Quarter: 2012Q4

REPORT INFORMATION
  Report Type: Spontaneous
  Country: US (occurrence: None)
  Receive Date: 20121004
  Receipt Date: 20121004
  Transmission Date: 20130627
  Serious: Yes (Hospitalization)
  Sender: FDA-Public Use
  Company Number: UTC-023567

PATIENT
  Age: 46 Year
  Sex: Female
  Weight: 54.1 kg

DRUGS (3)
  1. TYVASO (6 MICROGRAM, AEROSOL FOR INHALATION) (TREPROSTINIL SODIUM) [Suspect]
  2. ADCIRCA (TADALAFIL) [Concomitant]
  3. LETAIRIS [Concomitant]

REACTIONS (2)
  - Hypertension [None]
  - Heart rate increased [None]
